FAERS Safety Report 10045450 (Version 1)
Quarter: 2014Q1

REPORT INFORMATION
  Report Type: Spontaneous
  Country: US (occurrence: None)
  Receive Date: 20140306
  Receipt Date: 20140306
  Transmission Date: 20141002
  Serious: Yes (Life-Threatening, Other)
  Sender: FDA-Public Use
  Company Number: 163-21880-13061144

PATIENT
  Age: 68 Year
  Sex: Male

DRUGS (24)
  1. REVLIMID (LENALIDOMIDE) (15 MILLIGRAM, CAPSULES) [Suspect]
     Indication: PLASMA CELL MYELOMA
     Route: 048
     Dates: start: 20120626
  2. DEXAMETHASONE [Concomitant]
  3. ZOMETA (ZOLEDRONIC ACID) [Concomitant]
  4. LOVASTATIN [Concomitant]
  5. GABAPENTIN [Concomitant]
  6. TAMSULOSIN [Concomitant]
  7. FINASTERIDE [Concomitant]
  8. PROCHLORPERAZINE [Concomitant]
  9. TUMS CALCIUM (CALCIUM CARBONATE) [Concomitant]
  10. ALLOPURINOL [Concomitant]
  11. PROBENECID [Concomitant]
  12. OMEPRAZOLE [Concomitant]
  13. WARFARIN [Concomitant]
  14. VITAMIN D3 (COLECALCIFEROL) [Concomitant]
  15. COLCRYS (COLCHICINE) [Concomitant]
  16. VELCADE (BORTEZOMIB) [Concomitant]
  17. MORPHINE SULFATE IR (MORPHINE SULFATE) [Concomitant]
  18. LOVENOX (HEPARIN-FRACTION, SODIUM SALT) [Concomitant]
  19. METOPROLOL SUCCINATE ER (METOPROLOL SUCCINATE) [Concomitant]
  20. BUFFERED LIDOCAINE (LIDOCAINE) [Concomitant]
  21. COLACE (DOCUSATE SODIUM) [Concomitant]
  22. CENTRUM SILVER [Concomitant]
  23. VALACYCLOVIR HCL (VALACICLOVIR HYDROCHLORIDE) [Concomitant]
  24. HYDROMORPHONE [Concomitant]

REACTIONS (1)
  - Thrombosis [None]
